FAERS Safety Report 4836482-0 (Version None)
Quarter: 2005Q4

REPORT INFORMATION
  Report Type: 
  Country: None (occurrence: None)
  Receive Date: 20051123
  Receipt Date: 20050908
  Transmission Date: 20060501
  Serious: Yes (Hospitalization)
  Sender: FDA-Public Use
  Company Number: PHHO2005ES14091

PATIENT
  Age: 52 Year
  Sex: Male

DRUGS (3)
  1. CERTICAN VS MYCOPHENOLATE MOFETIL [Suspect]
     Indication: HEART TRANSPLANT
     Dosage: 3000 MG/DAY
     Route: 048
     Dates: start: 20050517, end: 20050811
  2. SANDIMMUNE [Suspect]
     Indication: RENAL TRANSPLANT
     Dosage: 30 MG, Q12H
     Route: 042
     Dates: start: 20050517
  3. STEROIDS NOS [Suspect]
     Indication: RENAL TRANSPLANT
     Dosage: 30 MG/DAY
     Route: 042
     Dates: start: 20050517

REACTIONS (18)
  - ACINETOBACTER INFECTION [None]
  - ASPERGILLOSIS [None]
  - CANDIDIASIS [None]
  - CARDIOVERSION [None]
  - DEPRESSION [None]
  - EYE MOVEMENT DISORDER [None]
  - GASTRIC PERFORATION [None]
  - GASTRIC ULCER [None]
  - GASTROINTESTINAL HAEMORRHAGE [None]
  - LAPAROTOMY [None]
  - MIOSIS [None]
  - NEUTROPENIA [None]
  - OCULAR HYPERAEMIA [None]
  - PNEUMONIA [None]
  - SEPSIS [None]
  - SEPTIC SHOCK [None]
  - STAPHYLOCOCCAL INFECTION [None]
  - SUPRAVENTRICULAR TACHYCARDIA [None]
